FAERS Safety Report 21088333 (Version 6)
Quarter: 2022Q4

REPORT INFORMATION
  Report Type: Report from Study
  Country: US (occurrence: US)
  Receive Date: 20220715
  Receipt Date: 20221212
  Transmission Date: 20230112
  Serious: Yes (Other)
  Sender: FDA-Public Use
  Company Number: US-NOVARTISPH-NVSC2022US159441

PATIENT
  Sex: Female

DRUGS (1)
  1. COSENTYX [Suspect]
     Active Substance: SECUKINUMAB
     Indication: Ankylosing spondylitis
     Dosage: 150 MG, QW
     Route: 058
     Dates: start: 202206

REACTIONS (6)
  - Diverticulitis [Recovering/Resolving]
  - Respiratory tract infection viral [Recovering/Resolving]
  - Back pain [Not Recovered/Not Resolved]
  - Illness [Unknown]
  - Infection [Unknown]
  - Drug ineffective [Unknown]
